FAERS Safety Report 4822860-2 (Version None)
Quarter: 2005Q4

REPORT INFORMATION
  Report Type: 
  Country: None (occurrence: None)
  Receive Date: 20051104
  Receipt Date: 20051025
  Transmission Date: 20060501
  Serious: Yes (Hospitalization, Other)
  Sender: FDA-Public Use
  Company Number: 2005147896

PATIENT
  Age: 73 Year
  Sex: Female
  Weight: 66.6788 kg

DRUGS (6)
  1. XANAX [Suspect]
     Indication: ANXIETY
     Dosage: 0.25 MG, AS NEEDED, ORAL
     Route: 048
  2. METOPROLOL TARTRATE [Suspect]
     Indication: HYPERTENSION
     Dosage: 3/4 TABLET (25 MG, 1 IN 1 D), ORAL
     Route: 048
  3. ZOCOR [Suspect]
     Indication: BLOOD CHOLESTEROL INCREASED
     Dates: start: 20050301
  4. LOPRESSOR [Suspect]
     Indication: HYPERTENSION
  5. HALCION [Concomitant]
  6. ASPIRIN [Concomitant]

REACTIONS (17)
  - ARRHYTHMIA [None]
  - ASTHENIA [None]
  - BALANCE DISORDER [None]
  - BLOOD CHOLESTEROL INCREASED [None]
  - BONE DISORDER [None]
  - BONE PAIN [None]
  - COELIAC DISEASE [None]
  - DIZZINESS [None]
  - DRUG HYPERSENSITIVITY [None]
  - ELECTROLYTE IMBALANCE [None]
  - FALL [None]
  - FUNGAL INFECTION [None]
  - HEART RATE DECREASED [None]
  - HYPERTENSION [None]
  - PELVIC FRACTURE [None]
  - TOOTH FRACTURE [None]
  - VITAMIN D DECREASED [None]
